FAERS Safety Report 4826663-4 (Version None)
Quarter: 2005Q4

REPORT INFORMATION
  Report Type: 
  Country: None (occurrence: None)
  Receive Date: 20051014
  Receipt Date: 20050605
  Transmission Date: 20060501
  Serious: No
  Sender: FDA-Public Use
  Company Number: 2005SP002921

PATIENT
  Age: 15 Year
  Sex: Male

DRUGS (1)
  1. LUNESTA [Suspect]

REACTIONS (4)
  - COORDINATION ABNORMAL [None]
  - DYSPNOEA [None]
  - EYE SWELLING [None]
  - HALLUCINATION [None]
